FAERS Safety Report 19450610 (Version 2)
Quarter: 2021Q3

REPORT INFORMATION
  Report Type: Spontaneous
  Country: AR (occurrence: AR)
  Receive Date: 20210622
  Receipt Date: 20210728
  Transmission Date: 20211014
  Serious: Yes (Other)
  Sender: FDA-Public Use
  Company Number: AR-PFIZER INC-2021676765

PATIENT
  Age: 70 Year
  Sex: Female

DRUGS (1)
  1. XELJANZ [Suspect]
     Active Substance: TOFACITINIB CITRATE
     Indication: RHEUMATOID ARTHRITIS
     Dosage: 5 MG, 2X/DAY
     Dates: start: 20190220

REACTIONS (7)
  - Back pain [Unknown]
  - Peripheral swelling [Unknown]
  - Spinal disorder [Unknown]
  - Thyroid disorder [Unknown]
  - Sensitivity to weather change [Unknown]
  - Malaise [Unknown]
  - Arthralgia [Unknown]
